FAERS Safety Report 5405325-9 (Version None)
Quarter: 2007Q3

REPORT INFORMATION
  Report Type: 
  Country: None (occurrence: None)
  Receive Date: 20070803
  Receipt Date: 20070727
  Transmission Date: 20080115
  Serious: Yes (Other)
  Sender: FDA-Public Use
  Company Number: US-SANOFI-SYNTHELABO-A03200703416

PATIENT
  Age: 53 Year
  Sex: Male
  Weight: 136.1 kg

DRUGS (11)
  1. BENADRYL [Concomitant]
     Dosage: UNK
     Route: 065
  2. FOLIC ACID [Concomitant]
     Dosage: UNK
     Route: 065
  3. XANAX [Concomitant]
     Dosage: UNK
     Route: 065
  4. SOMA [Concomitant]
     Dosage: UNK
     Route: 065
  5. ULTRAM [Concomitant]
     Dosage: UNK
     Route: 048
  6. MORPHINE [Concomitant]
     Dosage: UNK
     Route: 065
  7. ASPIRIN [Concomitant]
     Route: 048
  8. PLAVIX [Suspect]
     Indication: DEEP VEIN THROMBOSIS
     Route: 048
     Dates: start: 20060101
  9. PLAVIX [Suspect]
     Indication: PULMONARY EMBOLISM
     Route: 048
     Dates: start: 20060101
  10. VITAMIN E [Concomitant]
     Dosage: UNK
     Route: 065
  11. FISH OIL [Concomitant]
     Dosage: UNK
     Route: 065

REACTIONS (3)
  - CONTUSION [None]
  - FALL [None]
  - PHLEBITIS [None]
